FAERS Safety Report 6663736-8 (Version None)
Quarter: 2010Q1

REPORT INFORMATION
  Report Type: 
  Country: None (occurrence: None)
  Receive Date: 20100331
  Receipt Date: 20100331
  Transmission Date: 20100710
  Serious: Yes (Hospitalization)
  Sender: FDA-Public Use
  Company Number: None

PATIENT
  Sex: Male
  Weight: 70.3075 kg

DRUGS (1)
  1. SIMVASTATIN [Suspect]
     Indication: HYPERLIPIDAEMIA
     Dosage: 20 MG QD PO
     Route: 048
     Dates: start: 20090319, end: 20090628

REACTIONS (3)
  - INJURY [None]
  - ROAD TRAFFIC ACCIDENT [None]
  - TENDON RUPTURE [None]
